FAERS Safety Report 5804990-1 (Version None)
Quarter: 2008Q3

REPORT INFORMATION
  Report Type: 
  Country: None (occurrence: None)
  Receive Date: 20080709
  Receipt Date: 20080630
  Transmission Date: 20090109
  Serious: Yes (Life-Threatening)
  Sender: FDA-Public Use
  Company Number: JP-PFIZER INC-2008055063

PATIENT
  Age: 69 Year
  Sex: Female

DRUGS (8)
  1. SULPERAZON [Suspect]
     Indication: INFECTIVE SPONDYLITIS
     Dosage: DAILY DOSE:2GRAM
     Route: 042
     Dates: start: 20080328, end: 20080331
  2. AMLODIPINE [Concomitant]
     Route: 048
  3. ATARAX [Concomitant]
     Route: 048
  4. MEXITIL [Concomitant]
     Route: 048
  5. TORSEMIDE [Concomitant]
     Route: 048
  6. SOLANAX [Concomitant]
     Route: 048
  7. TAKEPRON [Concomitant]
     Route: 048
  8. URSO 250 [Concomitant]
     Route: 048

REACTIONS (1)
  - LUNG INJURY [None]
